FAERS Safety Report 6425655-1 (Version None)
Quarter: 2009Q4

REPORT INFORMATION
  Report Type: 
  Country: None (occurrence: None)
  Receive Date: 20091103
  Receipt Date: 20091020
  Transmission Date: 20100525
  Serious: Yes (Other)
  Sender: FDA-Public Use
  Company Number: DE-GENENTECH-292379

PATIENT
  Age: 39 Year
  Sex: Female

DRUGS (5)
  1. BLINDED OMALIZUMAB [Suspect]
     Indication: ASTHMA
     Dosage: UNK
     Route: 058
     Dates: start: 20011217
  2. BLINDED PLACEBO [Suspect]
     Indication: ASTHMA
     Dosage: UNK
     Route: 058
     Dates: start: 20011217
  3. BLINDED OMALIZUMAB [Suspect]
     Indication: RHINITIS ALLERGIC
  4. BLINDED PLACEBO [Suspect]
     Indication: RHINITIS ALLERGIC
  5. VALETTE [Concomitant]
     Indication: DRUG USE FOR UNKNOWN INDICATION

REACTIONS (1)
  - CEREBRAL INFARCTION [None]
